FAERS Safety Report 5105265-9 (Version None)
Quarter: 2006Q3

REPORT INFORMATION
  Report Type: 
  Country: None (occurrence: None)
  Receive Date: 20060911
  Receipt Date: 20060901
  Transmission Date: 20061208
  Serious: Yes (Hospitalization)
  Sender: FDA-Public Use
  Company Number: 229455

PATIENT
  Age: 72 Year
  Sex: Male
  Weight: 73.9 kg

DRUGS (8)
  1. SOMATROPIN                                (SOMATROPIN) SOLUTION FOR IN [Suspect]
     Indication: PITUITARY TUMOUR BENIGN
     Dates: start: 20041217
  2. UNKNOWN MEDICATION                (GENERIC COMPONENT (S) NOT KNOWN) [Concomitant]
  3. ALTACE [Concomitant]
  4. HYDROCHLOROTHIAZIDE [Concomitant]
  5. TOPROL-XL [Concomitant]
  6. LESCOL [Concomitant]
  7. PLAVIX [Concomitant]
  8. FISH OIL (FISH OIL) [Concomitant]

REACTIONS (2)
  - HYPOGLYCAEMIA [None]
  - WRONG DRUG ADMINISTERED [None]
